FAERS Safety Report 9014240 (Version 1)
Quarter: 2013Q1

REPORT INFORMATION
  Report Type: Report from Study
  Country: DE (occurrence: DE)
  Receive Date: 20130115
  Receipt Date: 20130115
  Transmission Date: 20140127
  Serious: Yes (Hospitalization)
  Sender: FDA-Public Use
  Company Number: DE-ABBOTT-13P-062-1035063-00

PATIENT
  Age: 79 Year
  Sex: Female

DRUGS (2)
  1. ZEMPLAR [Suspect]
     Indication: HYPERPARATHYROIDISM SECONDARY
     Dates: start: 201206
  2. NEORECORMON [Concomitant]
     Indication: PRODUCT USED FOR UNKNOWN INDICATION
     Dosage: 9000 IU PER WEEK
     Route: 050
     Dates: start: 20120621, end: 20120802

REACTIONS (3)
  - Diverticulum [Unknown]
  - Polyp [Unknown]
  - Gastritis [Unknown]
